FAERS Safety Report 4290557-6 (Version None)
Quarter: 2004Q1

REPORT INFORMATION
  Report Type: 
  Country: None (occurrence: None)
  Receive Date: 20040210
  Receipt Date: 20040205
  Transmission Date: 20041129
  Serious: Yes (Hospitalization, Other)
  Sender: FDA-Public Use
  Company Number: 03-12-1621

PATIENT
  Age: 56 Year
  Sex: Male

DRUGS (6)
  1. CLOZAPINE [Suspect]
     Indication: DEMENTIA
     Dosage: 100 MG TID ORAL
     Route: 048
     Dates: start: 20030903
  2. CLOZAPINE [Suspect]
     Indication: DEMENTIA ALZHEIMER'S TYPE
     Dosage: 100 MG TID ORAL
     Route: 048
     Dates: start: 20030903
  3. CLOZAPINE [Suspect]
     Indication: PARKINSON'S DISEASE
     Dosage: 100 MG TID ORAL
     Route: 048
     Dates: start: 20030903
  4. PARLODEL [Concomitant]
  5. EFFEXOR XR [Concomitant]
  6. SINEMET [Concomitant]

REACTIONS (2)
  - PNEUMONIA ASPIRATION [None]
  - WHITE BLOOD CELL COUNT INCREASED [None]
